FAERS Safety Report 25657845 (Version 1)
Quarter: 2025Q3

REPORT INFORMATION
  Report Type: Spontaneous
  Country: EU (occurrence: EU)
  Receive Date: 20250808
  Receipt Date: 20250808
  Transmission Date: 20251021
  Serious: Yes (Hospitalization)
  Sender: ROCHE
  Company Number: None

PATIENT
  Age: 6 Year
  Sex: Female
  Weight: 24.8 kg

DRUGS (4)
  1. TOCILIZUMAB [Suspect]
     Active Substance: TOCILIZUMAB
     Indication: Still^s disease
     Dosage: FORM STRENGTH: 20 MG/ML
     Route: 042
     Dates: start: 20231027, end: 20231027
  2. TOCILIZUMAB [Suspect]
     Active Substance: TOCILIZUMAB
     Route: 042
     Dates: start: 20231027, end: 20231027
  3. ENCORTON 20 MG TABLETKI [Concomitant]
     Indication: Still^s disease
     Dosage: THERAPY ONGOING
     Route: 048
     Dates: start: 20231018
  4. ENCORTON 20 MG TABLETKI [Concomitant]
     Dosage: THERAPY ONGOING
     Route: 048
     Dates: start: 20231018

REACTIONS (10)
  - Cyanosis [Recovered/Resolved]
  - Oropharyngeal pain [Recovered/Resolved]
  - Restlessness [Recovered/Resolved]
  - Dyspnoea [Recovered/Resolved]
  - Blood pressure increased [Recovered/Resolved]
  - Chills [Recovered/Resolved]
  - Tachycardia [Recovered/Resolved]
  - Oropharyngeal discomfort [Recovered/Resolved]
  - Throat irritation [Recovered/Resolved]
  - Cardiac murmur [Recovered/Resolved]

NARRATIVE: CASE EVENT DATE: 20231027
